FAERS Safety Report 5418115-8 (Version None)
Quarter: 2007Q3

REPORT INFORMATION
  Report Type: 
  Country: None (occurrence: None)
  Receive Date: 20070817
  Receipt Date: 20070815
  Transmission Date: 20080115
  Serious: Yes (Life-Threatening, Hospitalization, Other)
  Sender: FDA-Public Use
  Company Number: US-BRISTOL-MYERS SQUIBB COMPANY-13878350

PATIENT
  Age: 57 Year
  Sex: Female

DRUGS (11)
  1. ABATACEPT [Suspect]
     Indication: RHEUMATOID ARTHRITIS
     Dates: start: 20030618
  2. LOVASTATIN [Concomitant]
     Dates: start: 19961007
  3. HYDROMET [Concomitant]
  4. ACTOS [Concomitant]
     Dates: start: 20010508
  5. VERAPAMIL [Concomitant]
     Dates: start: 20000719
  6. LISINOPRIL [Concomitant]
     Dates: start: 19961007
  7. HYDROCHLOROTHIAZIDE [Concomitant]
     Dates: start: 19990818
  8. NORTRIPTYLINE HCL [Concomitant]
     Dates: start: 20060801
  9. PREDNISONE [Concomitant]
     Dates: start: 20020519
  10. VITAMIN D [Concomitant]
  11. FOSAMAX [Concomitant]
     Dates: start: 20010405

REACTIONS (2)
  - SEPTIC SHOCK [None]
  - UROSEPSIS [None]
